FAERS Safety Report 9117296 (Version 1)
Quarter: 2013Q1

REPORT INFORMATION
  Report Type: Spontaneous
  Country: US (occurrence: US)
  Receive Date: 20130208
  Receipt Date: 20130208
  Transmission Date: 20140127
  Serious: Yes (Hospitalization)
  Sender: FDA-Public Use
  Company Number: US-ASTRAZENECA-2013SE08311

PATIENT
  Age: 64 Year
  Sex: Female
  Weight: 59.9 kg

DRUGS (10)
  1. SYMBICORT PMDI [Suspect]
     Indication: ASTHMA
     Dosage: 2 PUFFS TWO TIMES A DAY
     Route: 055
     Dates: start: 2011
  2. SYMBICORT PMDI [Suspect]
     Indication: ASTHMA
     Route: 055
  3. PREDNISONE [Concomitant]
     Indication: ASTHMA
     Route: 048
  4. CLARINEX [Concomitant]
     Route: 048
  5. TRIAMATRENE [Concomitant]
     Indication: HYPERTENSION
     Route: 048
  6. SINGULAIR [Concomitant]
     Indication: ASTHMA
     Route: 048
  7. NASONEX [Concomitant]
     Dosage: BID
     Route: 045
  8. VENTOLIN INHALER [Concomitant]
     Indication: ASTHMA
     Dosage: AS REQUIRED
     Route: 055
  9. GENTAMYCIN SOLUTION [Concomitant]
     Indication: MULTIPLE ALLERGIES
     Dosage: DAILY
     Route: 045
  10. XALAIR INJECTION [Concomitant]
     Indication: MULTIPLE ALLERGIES
     Dosage: MONTHLY
     Route: 045

REACTIONS (3)
  - Pneumonia [Recovering/Resolving]
  - Uterine cancer [Unknown]
  - Bronchitis [Unknown]
